FAERS Safety Report 11927880 (Version 7)
Quarter: 2016Q1

REPORT INFORMATION
  Report Type: Spontaneous
  Country: CA (occurrence: CA)
  Receive Date: 20160119
  Receipt Date: 20160323
  Transmission Date: 20160526
  Serious: Yes (Other)
  Sender: FDA-Public Use
  Company Number: CA-PFIZER INC-2016008416

PATIENT
  Age: 53 Year
  Sex: Male

DRUGS (3)
  1. MELATONIN [Suspect]
     Active Substance: MELATONIN
     Dosage: UNK
  2. CELEBREX [Suspect]
     Active Substance: CELECOXIB
     Dosage: UNK
     Route: 048
  3. GABAPENTIN. [Suspect]
     Active Substance: GABAPENTIN
     Dosage: UNK

REACTIONS (23)
  - Haemoptysis [Unknown]
  - Oropharyngeal pain [Recovering/Resolving]
  - Heart rate increased [Unknown]
  - Lymph node palpable [Unknown]
  - Wheezing [Recovering/Resolving]
  - Dyspnoea [Recovering/Resolving]
  - Blood glucose increased [Not Recovered/Not Resolved]
  - Dry throat [Unknown]
  - Fatigue [Not Recovered/Not Resolved]
  - Pyrexia [Recovered/Resolved]
  - Skin discolouration [Unknown]
  - Blood cholesterol increased [Not Recovered/Not Resolved]
  - Nasopharyngitis [Recovering/Resolving]
  - Insomnia [Unknown]
  - Local swelling [Unknown]
  - Increased upper airway secretion [Recovering/Resolving]
  - Influenza [Recovering/Resolving]
  - Blood testosterone decreased [Not Recovered/Not Resolved]
  - Nasal dryness [Unknown]
  - Throat tightness [Recovering/Resolving]
  - Pneumonia [Recovering/Resolving]
  - Cough [Recovering/Resolving]
  - Lymph node pain [Unknown]

NARRATIVE: CASE EVENT DATE: 2016
